FAERS Safety Report 18427182 (Version 2)
Quarter: 2020Q4

REPORT INFORMATION
  Report Type: Spontaneous
  Country: US (occurrence: US)
  Receive Date: 20201026
  Receipt Date: 20201106
  Transmission Date: 20210114
  Serious: No
  Sender: FDA-Public Use
  Company Number: US-PFIZER INC-2020407694

PATIENT
  Age: 56 Year
  Sex: Male
  Weight: 88 kg

DRUGS (1)
  1. GLIPIZIDE XL [Suspect]
     Active Substance: GLIPIZIDE
     Indication: DIABETES MELLITUS
     Dosage: 10 MG, 2X/DAY (5 MG TWO TABLETS TWICE A DAY)
     Route: 048
     Dates: start: 2020, end: 20201011

REACTIONS (1)
  - Drug ineffective [Unknown]

NARRATIVE: CASE EVENT DATE: 2020
